FAERS Safety Report 7278270-4 (Version None)
Quarter: 2011Q1

REPORT INFORMATION
  Report Type: 
  Country: None (occurrence: None)
  Receive Date: 20110131
  Receipt Date: 20110118
  Transmission Date: 20110831
  Serious: Yes (Death, Hospitalization, Other)
  Sender: FDA-Public Use
  Company Number: 2010002736

PATIENT
  Age: 67 Year
  Sex: Female

DRUGS (23)
  1. GEMCITABINE [Suspect]
     Indication: PANCREATIC CARCINOMA METASTATIC
     Dosage: (1800 MG.QW),INTRAVENOUS
     Route: 042
     Dates: start: 20090317, end: 20090609
  2. NOVALGIN (METAMIZOLE SODIUM) [Concomitant]
  3. PANTOPRAZOLE SODIUM [Concomitant]
  4. METAMIZOL (METAMIZOLE SODIUM) [Concomitant]
  5. ERLOTINIB (ERLOTINIB) (TABLET) (ERLOTINIB) [Suspect]
     Indication: PANCREATIC CARCINOMA METASTATIC
     Dosage: (100 MG,QD),ORAL
     Route: 048
     Dates: start: 20090317, end: 20090526
  6. SPIRONOLACTONE [Concomitant]
  7. UNACID (UNACID) [Concomitant]
  8. CIPROFLOXACIN [Concomitant]
  9. ACETYLCYSTEINE [Concomitant]
  10. PHYTOMENADION (PHYTOMENADIONE) [Concomitant]
  11. CIPROFLOXACIN HYDROCHLORIDE (CIPROFLOXACIN) [Concomitant]
  12. METRONIDAZOLE [Concomitant]
  13. SELENASE (SODIUM SELENITE) [Concomitant]
  14. FUROSEMIDE [Concomitant]
  15. VANCOMYCIN [Concomitant]
  16. ERYTHROMYCIN [Concomitant]
  17. TRAMADOL HCL [Concomitant]
  18. PERFALGAN (PARACETAMOL) [Concomitant]
  19. MEROPENEM [Concomitant]
  20. METOCLOPRAMIDE [Concomitant]
  21. DIPYRONE TAB [Concomitant]
  22. ZINC-DL-ASPARTAT (ZINC DL-ASPARTATE) [Concomitant]
  23. LOPERAMID (LOPERAMIDE HYDROCHLORIDE) [Concomitant]

REACTIONS (9)
  - ILEUS [None]
  - WEIGHT DECREASED [None]
  - PLEURAL EFFUSION [None]
  - NAUSEA [None]
  - PULMONARY EMBOLISM [None]
  - LUNG DISORDER [None]
  - VOMITING [None]
  - PERITONITIS [None]
  - PYLORIC STENOSIS [None]
